FAERS Safety Report 11289311 (Version 2)
Quarter: 2015Q3

REPORT INFORMATION
  Report Type: Spontaneous
  Country: US (occurrence: US)
  Receive Date: 20150721
  Receipt Date: 20150813
  Transmission Date: 20151125
  Serious: No
  Sender: FDA-Public Use
  Company Number: US-GLAXOSMITHKLINE-US2015103479

PATIENT
  Age: 33 Year
  Sex: Female

DRUGS (1)
  1. ABREVA [Suspect]
     Active Substance: DOCOSANOL
     Indication: ORAL HERPES
     Dosage: UNK
     Dates: start: 20150716, end: 20150717

REACTIONS (5)
  - Hypoaesthesia [Unknown]
  - Condition aggravated [Unknown]
  - Piloerection [Unknown]
  - Blister [Unknown]
  - Drug administration error [Unknown]
